FAERS Safety Report 24921057 (Version 1)
Quarter: 2025Q1

REPORT INFORMATION
  Report Type: Spontaneous
  Country: MA (occurrence: MA)
  Receive Date: 20250204
  Receipt Date: 20250204
  Transmission Date: 20250409
  Serious: No
  Sender: ALKEM
  Company Number: MA-ALKEM LABORATORIES LIMITED-MA-ALKEM-2024-20851

PATIENT
  Age: 53 Year
  Sex: Female

DRUGS (5)
  1. GABAPENTIN [Suspect]
     Active Substance: GABAPENTIN
     Indication: Stiff person syndrome
     Dosage: 300 MILLIGRAM, QD
     Route: 065
  2. METHYLPREDNISOLONE [Suspect]
     Active Substance: METHYLPREDNISOLONE
     Indication: Stiff person syndrome
     Dosage: 1 GRAM, QD
     Route: 065
  3. ALPRAZOLAM [Suspect]
     Active Substance: ALPRAZOLAM
     Indication: Stiff person syndrome
     Dosage: 1 MILLIGRAM, QD
     Route: 065
  4. BACLOFEN [Suspect]
     Active Substance: BACLOFEN
     Indication: Stiff person syndrome
     Dosage: 10 MILLIGRAM, QD
     Route: 065
  5. RITUXIMAB [Suspect]
     Active Substance: RITUXIMAB
     Indication: Stiff person syndrome
     Route: 065

REACTIONS (1)
  - Therapy partial responder [Unknown]
